FAERS Safety Report 10273121 (Version 2)
Quarter: 2014Q3

REPORT INFORMATION
  Report Type: Spontaneous
  Country: US (occurrence: None)
  Receive Date: 20140630
  Receipt Date: 20140801
  Transmission Date: 20150326
  Serious: Yes (Hospitalization)
  Sender: FDA-Public Use
  Company Number: UNT-2014-000696

PATIENT
  Age: 50 Year
  Sex: Female
  Weight: 111.1 kg

DRUGS (4)
  1. TYVASO [Suspect]
     Active Substance: TREPROSTINIL
     Indication: COR PULMONALE CHRONIC
     Route: 055
     Dates: start: 20140425
  2. DIURETICS [Suspect]
     Active Substance: UNSPECIFIED INGREDIENT
     Indication: PRODUCT USED FOR UNKNOWN INDICATION
  3. LETAIRIS [Concomitant]
     Active Substance: AMBRISENTAN
  4. REVATIO (SILDENAFIL CITRATE) [Concomitant]

REACTIONS (18)
  - Diarrhoea [None]
  - Malaise [None]
  - Nasopharyngitis [None]
  - Weight increased [None]
  - Oropharyngeal pain [None]
  - Back pain [None]
  - Pain in extremity [None]
  - Throat irritation [None]
  - Flushing [None]
  - Musculoskeletal pain [None]
  - Myalgia [None]
  - Headache [None]
  - Insomnia [None]
  - Fluid retention [None]
  - Dyspnoea [None]
  - Influenza like illness [None]
  - Cough [None]
  - Fatigue [None]

NARRATIVE: CASE EVENT DATE: 20140426
